FAERS Safety Report 8492000-X (Version None)
Quarter: 2012Q3

REPORT INFORMATION
  Report Type: 
  Country: None (occurrence: None)
  Receive Date: 20120706
  Receipt Date: 20120623
  Transmission Date: 20120928
  Serious: Yes (Other)
  Sender: FDA-Public Use
  Company Number: IT-MYLANLABS-2012S1012872

PATIENT
  Age: 71 Year
  Sex: Female

DRUGS (11)
  1. LORAZEPAM [Concomitant]
     Indication: INSOMNIA
  2. ZANTAC [Concomitant]
     Indication: PREMEDICATION
     Route: 042
  3. TRIMETON /00072502/ [Concomitant]
     Indication: PREMEDICATION
  4. SPIRIVA [Concomitant]
     Indication: BRONCHOPNEUMOPATHY
     Route: 055
  5. FLUTICASONE PROPIONATE/SALMETEROL [Concomitant]
     Indication: BRONCHOPNEUMOPATHY
     Route: 055
  6. PANTOPRAZOLE [Concomitant]
     Indication: HYPERCHLORHYDRIA
  7. ONDANSETRON [Concomitant]
     Indication: PREMEDICATION
     Route: 042
  8. DECADRON [Concomitant]
     Indication: PREMEDICATION
  9. CANDESARTAN CILEXETIL [Concomitant]
     Indication: HYPERTENSION
  10. SIMVASTATIN [Concomitant]
     Indication: HYPERCHOLESTEROLAEMIA
  11. PACLITAXEL [Suspect]
     Indication: CHEMOTHERAPY
     Route: 042
     Dates: start: 20120529, end: 20120629

REACTIONS (2)
  - TRISMUS [None]
  - LACRIMATION INCREASED [None]
